FAERS Safety Report 9319665 (Version 2)
Quarter: 2013Q3

REPORT INFORMATION
  Report Type: Spontaneous
  Country: SE (occurrence: SE)
  Receive Date: 20130530
  Receipt Date: 20130710
  Transmission Date: 20140515
  Serious: Yes (Hospitalization, Other)
  Sender: FDA-Public Use
  Company Number: SE-AMGEN-SWESP2013038320

PATIENT
  Age: 43 Year
  Sex: Female

DRUGS (6)
  1. ENBREL [Suspect]
     Indication: RHEUMATOID ARTHRITIS
     Dosage: 50 MG, WEEKLY
     Route: 058
     Dates: start: 2008, end: 20130430
  2. METHOTREXATE [Concomitant]
     Dosage: 7.5 MG, WEEKLY
     Dates: start: 2007, end: 20130430
  3. FOLACIN                            /00198401/ [Concomitant]
     Dosage: UNK
  4. RAMIPRIL [Concomitant]
     Dosage: 1.25 MG, 2X/DAY
     Dates: start: 2011
  5. BISOPROLOL [Concomitant]
     Dosage: 2.5 MG, 2X/DAY
  6. ANAFRANIL [Concomitant]
     Dosage: UNK
     Dates: start: 2000

REACTIONS (1)
  - Cerebral infarction [Recovered/Resolved]
